FAERS Safety Report 13497865 (Version 2)
Quarter: 2017Q2

REPORT INFORMATION
  Report Type: Report from Study
  Country: JP (occurrence: JP)
  Receive Date: 20170428
  Receipt Date: 20170621
  Transmission Date: 20170830
  Serious: Yes (Other)
  Sender: FDA-Public Use
  Company Number: JP-INCYTE CORPORATION-2016IN004109

PATIENT

DRUGS (3)
  1. JAKAVI [Suspect]
     Active Substance: RUXOLITINIB
     Dosage: 5 MG, QOD
     Route: 048
     Dates: start: 20160612, end: 20160709
  2. JAKAVI [Suspect]
     Active Substance: RUXOLITINIB
     Dosage: 5MG, BID
     Route: 048
     Dates: start: 20160529, end: 20160611
  3. JAKAVI [Suspect]
     Active Substance: RUXOLITINIB
     Indication: POLYCYTHAEMIA VERA
     Dosage: 5 MG, BID
     Route: 048
     Dates: start: 20160306, end: 20160528

REACTIONS (4)
  - Hyperkalaemia [Recovered/Resolved]
  - Myalgia [Recovered/Resolved]
  - Stomatitis [Recovered/Resolved]
  - Blood creatinine increased [Recovered/Resolved]

NARRATIVE: CASE EVENT DATE: 20160402
